FAERS Safety Report 7462982-3 (Version None)
Quarter: 2011Q2

REPORT INFORMATION
  Report Type: 
  Country: None (occurrence: None)
  Receive Date: 20110506
  Receipt Date: 20110502
  Transmission Date: 20111010
  Serious: Yes (Other)
  Sender: FDA-Public Use
  Company Number: US-BAYER-2011-037931

PATIENT
  Sex: Female

DRUGS (2)
  1. DROSPIRENONE AND ETHINYL ESTRADIOL [Suspect]
     Dosage: UNK
     Dates: start: 20090701, end: 20090901
  2. YASMIN [Suspect]
     Dosage: UNK
     Dates: start: 20090901

REACTIONS (9)
  - PAIN IN EXTREMITY [None]
  - INJURY [None]
  - PULMONARY EMBOLISM [None]
  - ANXIETY [None]
  - EMOTIONAL DISTRESS [None]
  - ANHEDONIA [None]
  - CHEST PAIN [None]
  - PAIN [None]
  - GENERAL PHYSICAL HEALTH DETERIORATION [None]
